FAERS Safety Report 19648317 (Version 1)
Quarter: 2021Q3

REPORT INFORMATION
  Report Type: Spontaneous
  Country: IT (occurrence: IT)
  Receive Date: 20210802
  Receipt Date: 20210802
  Transmission Date: 20211014
  Serious: Yes (Life-Threatening, Hospitalization, Other)
  Sender: FDA-Public Use
  Company Number: IT-MYLANLABS-2021M1044783

PATIENT
  Age: 71 Year
  Sex: Female

DRUGS (7)
  1. BEVACIZUMAB MYLAN [Suspect]
     Active Substance: BEVACIZUMAB
     Indication: CHEMOTHERAPY
     Dosage: UNK, CYCLIC, 6 COURSES
     Dates: end: 201808
  2. PACLITAXEL. [Suspect]
     Active Substance: PACLITAXEL
     Indication: OVARIAN CANCER STAGE III
     Dosage: UNK
  3. GEMCITABINE. [Suspect]
     Active Substance: GEMCITABINE
     Indication: OVARIAN CANCER STAGE III
     Dosage: UNK, CYCLIC, 6 COURSES
     Dates: start: 2019
  4. BEVACIZUMAB MYLAN [Suspect]
     Active Substance: BEVACIZUMAB
     Indication: OVARIAN CANCER STAGE III
     Dosage: UNK, CYCLIC, 6 COURSES
     Dates: start: 2019
  5. GEMCITABINE. [Suspect]
     Active Substance: GEMCITABINE
     Indication: CHEMOTHERAPY
     Dosage: UNK, CYCLIC, 6 COURSES
     Dates: end: 201808
  6. CARBOPLATIN. [Suspect]
     Active Substance: CARBOPLATIN
     Indication: OVARIAN CANCER STAGE III
     Dosage: UNK, CYCLIC, 6 COURSES
     Dates: start: 201905
  7. CARBOPLATIN. [Suspect]
     Active Substance: CARBOPLATIN
     Indication: CHEMOTHERAPY
     Dosage: UNK, CYCLIC, 6 COURSES
     Dates: end: 201808

REACTIONS (6)
  - Ureteric fistula [Unknown]
  - Wound dehiscence [Unknown]
  - Intestinal perforation [Unknown]
  - Myocardial ischaemia [Unknown]
  - Stress cardiomyopathy [Unknown]
  - Intracardiac thrombus [Unknown]
